FAERS Safety Report 4462127-8 (Version None)
Quarter: 2004Q3

REPORT INFORMATION
  Report Type: 
  Country: None (occurrence: None)
  Receive Date: 20040929
  Receipt Date: 20040924
  Transmission Date: 20050211
  Serious: Yes (Hospitalization, Other)
  Sender: FDA-Public Use
  Company Number: JP-BRISTOL-MYERS SQUIBB COMPANY-12712873

PATIENT
  Sex: Male

DRUGS (3)
  1. STOCRIN [Suspect]
     Indication: HIV INFECTION
     Route: 048
  2. ZERIT [Suspect]
     Indication: HIV INFECTION
     Route: 048
  3. EPIVIR [Suspect]
     Indication: HIV INFECTION
     Route: 048

REACTIONS (1)
  - GASTRIC CANCER [None]
